FAERS Safety Report 8510929-0 (Version None)
Quarter: 2012Q3

REPORT INFORMATION
  Report Type: 
  Country: None (occurrence: None)
  Receive Date: 20120716
  Receipt Date: 20120712
  Transmission Date: 20120928
  Serious: Yes (Hospitalization)
  Sender: FDA-Public Use
  Company Number: US-SHIRE-ALL1-2012-03393

PATIENT
  Age: 24 Year
  Sex: Male
  Weight: 61.224 kg

DRUGS (2)
  1. LIALDA [Suspect]
     Dosage: 4.8 G, 1X/DAY:QD (FOUR-1.2G TABLETS)
     Route: 048
     Dates: start: 20120401
  2. LIALDA [Suspect]
     Indication: COLITIS ULCERATIVE
     Dosage: 2.4 G, 1X/DAY:QD (TWO- 1.2G TABLETS)
     Route: 048
     Dates: end: 20120401

REACTIONS (3)
  - COLITIS ULCERATIVE [None]
  - ABDOMINAL PAIN [None]
  - DIARRHOEA HAEMORRHAGIC [None]
